FAERS Safety Report 7292468-0 (Version None)
Quarter: 2011Q1

REPORT INFORMATION
  Report Type: 
  Country: None (occurrence: None)
  Receive Date: 20110215
  Receipt Date: 20110211
  Transmission Date: 20110831
  Serious: No
  Sender: FDA-Public Use
  Company Number: US-PFIZER INC-2011031602

PATIENT
  Sex: Male
  Weight: 80.272 kg

DRUGS (2)
  1. SIMVASTATIN [Concomitant]
     Indication: BLOOD CHOLESTEROL INCREASED
     Dosage: UNK
  2. VIAGRA [Suspect]
     Dosage: UNK
     Route: 048

REACTIONS (2)
  - EXPIRED DRUG ADMINISTERED [None]
  - FLUSHING [None]
